FAERS Safety Report 10867245 (Version 1)
Quarter: 2015Q1

REPORT INFORMATION
  Report Type: Spontaneous
  Country: US (occurrence: US)
  Receive Date: 20150225
  Receipt Date: 20150225
  Transmission Date: 20150721
  Serious: Yes (Other)
  Sender: FDA-Public Use
  Company Number: US-CELGENE-USA-2015022476

PATIENT

DRUGS (4)
  1. REVLIMID [Suspect]
     Active Substance: LENALIDOMIDE
     Indication: B-CELL SMALL LYMPHOCYTIC LYMPHOMA
     Dosage: 2.5-10MG
     Route: 048
  2. IBRUTINIB [Suspect]
     Active Substance: IBRUTINIB
     Indication: B-CELL SMALL LYMPHOCYTIC LYMPHOMA
     Route: 065
  3. REVLIMID [Suspect]
     Active Substance: LENALIDOMIDE
     Indication: CHRONIC LYMPHOCYTIC LEUKAEMIA
  4. IBRUTINIB [Suspect]
     Active Substance: IBRUTINIB
     Indication: CHRONIC LYMPHOCYTIC LEUKAEMIA

REACTIONS (13)
  - Lymphocytosis [Unknown]
  - Diarrhoea [Unknown]
  - Neutropenia [Unknown]
  - Tumour pain [Unknown]
  - Abdominal discomfort [Unknown]
  - Rash [Unknown]
  - Febrile neutropenia [Unknown]
  - Fatigue [Unknown]
  - Thrombocytopenia [Unknown]
  - Anaemia [Unknown]
  - Atrial fibrillation [Unknown]
  - Muscle spasms [Unknown]
  - Disease progression [Unknown]
